FAERS Safety Report 8015196-2 (Version None)
Quarter: 2011Q4

REPORT INFORMATION
  Report Type: 
  Country: None (occurrence: None)
  Receive Date: 20111230
  Receipt Date: 20111227
  Transmission Date: 20120403
  Serious: No
  Sender: FDA-Public Use
  Company Number: US-BIOGENIDEC-2011BI048729

PATIENT
  Age: 56 Year
  Sex: Female

DRUGS (2)
  1. TYSABRI [Suspect]
     Indication: MULTIPLE SCLEROSIS
     Route: 042
     Dates: start: 20090319
  2. TYSABRI [Suspect]
     Route: 042
     Dates: start: 20061205, end: 20071220

REACTIONS (2)
  - DRUG HYPERSENSITIVITY [None]
  - STAPHYLOCOCCAL SKIN INFECTION [None]
